FAERS Safety Report 11632391 (Version 1)
Quarter: 2015Q4

REPORT INFORMATION
  Report Type: Spontaneous
  Country: US (occurrence: None)
  Receive Date: 20151014
  Receipt Date: 20151014
  Transmission Date: 20160304
  Serious: Yes (Hospitalization)
  Sender: FDA-Public Use
  Company Number: None

PATIENT
  Age: 68 Year
  Sex: Male
  Weight: 91 kg

DRUGS (1)
  1. ASPIRIN. [Suspect]
     Active Substance: ASPIRIN

REACTIONS (2)
  - Pulmonary embolism [None]
  - Delirium [None]

NARRATIVE: CASE EVENT DATE: 20150825
